FAERS Safety Report 24810056 (Version 1)
Quarter: 2025Q1

REPORT INFORMATION
  Report Type: Spontaneous
  Country: US (occurrence: None)
  Receive Date: 20250104
  Receipt Date: 20250104
  Transmission Date: 20250408
  Serious: Yes (Death)
  Sender: FDA-CTU
  Company Number: None

PATIENT
  Age: 63 Year
  Sex: Male

DRUGS (1)
  1. INLYTA [Suspect]
     Active Substance: AXITINIB
     Indication: Renal cancer
     Dosage: OTHER QUANTITY : 60;?FREQUENCY : TWICE A DAY;?
     Route: 048
     Dates: start: 20241001

REACTIONS (2)
  - Disease progression [None]
  - Malignant neoplasm progression [None]

NARRATIVE: CASE EVENT DATE: 20241220
